FAERS Safety Report 23455900 (Version 3)
Quarter: 2024Q2

REPORT INFORMATION
  Report Type: Spontaneous
  Country: US (occurrence: US)
  Receive Date: 20240130
  Receipt Date: 20240509
  Transmission Date: 20240716
  Serious: Yes (Life-Threatening, Hospitalization)
  Sender: FDA-Public Use
  Company Number: US-Accord-402795

PATIENT
  Age: 71 Year
  Sex: Male
  Weight: 108.0 kg

DRUGS (18)
  1. CISPLATIN [Suspect]
     Active Substance: CISPLATIN
     Indication: Small cell lung cancer
     Dosage: 177 MG (75MG/M2) Q3W
     Route: 042
     Dates: start: 20231101
  2. ETOPOSIDE [Suspect]
     Active Substance: ETOPOSIDE
     Indication: Small cell lung cancer
     Dosage: 236 MG (100MG/M2), Q3W, DAY 1-DAY 3 OF EACH CYCLE
     Route: 042
     Dates: start: 20231101
  3. SIMVASTATIN [Concomitant]
     Active Substance: SIMVASTATIN
     Indication: Hyperlipidaemia
     Dosage: 40 MG, ONCE DAILY (QD), FROM MORE THAN 10 YEARS AGO
     Route: 048
  4. METFORMIN [Concomitant]
     Active Substance: METFORMIN HYDROCHLORIDE
     Indication: Impaired fasting glucose
     Dosage: 850 MG, QD
     Route: 048
  5. HYDROCHLOROTHIAZIDE\LOSARTAN [Concomitant]
     Active Substance: HYDROCHLOROTHIAZIDE\LOSARTAN
     Indication: Hypertension
     Dosage: 100-12.5MG, QD, FROM MORE THAN 10 YEARS AGO
     Route: 048
  6. OMEPRAZOLE [Concomitant]
     Active Substance: DONEPEZIL HYDROCHLORIDE\OMEPRAZOLE\OMEPRAZOLE MAGNESIUM
     Indication: Gastrooesophageal reflux disease
     Dosage: 20MG, QD, FROM MORE THAN 20 YEARS AGO
     Route: 048
  7. DIPHENHYDRAMINE [Concomitant]
     Active Substance: DIPHENHYDRAMINE
     Indication: Chronic obstructive pulmonary disease
     Dosage: 25MG
     Route: 048
     Dates: start: 20230926
  8. IBUPROFEN [Concomitant]
     Active Substance: IBUPROFEN
     Indication: Back pain
     Dosage: 600 MG, AS NEEDED (PRN)
     Route: 048
  9. MAGNESIUM [Concomitant]
     Active Substance: MAGNESIUM
     Indication: Hypomagnesaemia
     Dosage: 500MG, QD
     Route: 048
     Dates: start: 20231026
  10. TAMSULOSIN [Concomitant]
     Active Substance: TAMSULOSIN
     Indication: Benign prostatic hyperplasia
     Dosage: 0.4MG, QD
     Route: 048
     Dates: start: 20231220
  11. FUROSEMIDE [Concomitant]
     Active Substance: FUROSEMIDE
     Indication: Oedema peripheral
     Dosage: 20MG, QD
     Route: 048
     Dates: start: 20231106
  12. OLANZAPINE [Concomitant]
     Active Substance: OLANZAPINE
     Indication: Nausea
     Dosage: 5MG, QD/PRN
     Route: 048
     Dates: start: 20231101
  13. PROCHLORPERAZINE [Concomitant]
     Active Substance: PROCHLORPERAZINE
     Dosage: 10 MG, PRN
     Route: 048
     Dates: start: 20231101
  14. ONDANSETRON [Concomitant]
     Active Substance: ONDANSETRON
     Indication: Nausea
     Dosage: 8 MG, PRN
     Route: 048
     Dates: start: 20231101
  15. ACETAMINOPHEN [Concomitant]
     Active Substance: ACETAMINOPHEN
     Indication: Back pain
     Dosage: 500MG, PRN
     Route: 048
  16. ALPRAZOLAM [Concomitant]
     Active Substance: ALPRAZOLAM
     Indication: Anxiety
     Dosage: 0.25MG, PRN, FROM MORE THAN 20 YEARS AGO
     Route: 048
  17. CISPLATIN [Suspect]
     Active Substance: CISPLATIN
     Indication: Small cell lung cancer
     Dosage: DOSE REDUCED TO 75% OF THE ORIGINAL DOSE, Q3W
     Route: 042
  18. ETOPOSIDE [Suspect]
     Active Substance: ETOPOSIDE
     Indication: Small cell lung cancer
     Dosage: DOSE REDUCED TO 75% OF THE ORIGINAL DOSE, Q3W, DAY 1-DAY 3 OF EACH CYCLE
     Route: 042

REACTIONS (3)
  - Neutrophil count decreased [Recovered/Resolved]
  - Platelet count decreased [Recovered/Resolved]
  - White blood cell count decreased [Recovered/Resolved]

NARRATIVE: CASE EVENT DATE: 20240104
